FAERS Safety Report 8045944-7 (Version None)
Quarter: 2012Q1

REPORT INFORMATION
  Report Type: 
  Country: None (occurrence: None)
  Receive Date: 20120113
  Receipt Date: 20120112
  Transmission Date: 20120608
  Serious: Yes (Death, Other)
  Sender: FDA-Public Use
  Company Number: IT-GLAXOSMITHKLINE-B0775042A

PATIENT
  Sex: Male
  Weight: 75 kg

DRUGS (3)
  1. MELPHALAN HYDROCHLORIDE [Suspect]
     Indication: MULTIPLE MYELOMA
     Dosage: .18MGK CYCLIC
     Dates: end: 20081216
  2. LENALIDOMIDE [Suspect]
     Indication: MULTIPLE MYELOMA
     Dosage: 10MG PER DAY
     Route: 048
     Dates: end: 20081216
  3. PREDNISONE [Suspect]
     Indication: MULTIPLE MYELOMA
     Dosage: 160MG CYCLIC
     Dates: end: 20081216

REACTIONS (2)
  - ACUTE MYELOID LEUKAEMIA [None]
  - PROSTATE CANCER [None]
